FAERS Safety Report 4371293-4 (Version None)
Quarter: 2004Q2

REPORT INFORMATION
  Report Type: 
  Country: None (occurrence: None)
  Receive Date: 20040604
  Receipt Date: 20040525
  Transmission Date: 20050107
  Serious: Yes (Death)
  Sender: FDA-Public Use
  Company Number: BE-MERCK-0405BEL00038

PATIENT
  Age: 69 Year
  Sex: Female
  Weight: 90 kg

DRUGS (7)
  1. CANCIDAS [Suspect]
     Indication: CANDIDIASIS
     Route: 042
     Dates: start: 20040317, end: 20040317
  2. CANCIDAS [Suspect]
     Route: 042
     Dates: start: 20040318, end: 20040330
  3. CANCIDAS [Suspect]
     Route: 042
     Dates: start: 20040412, end: 20040421
  4. CORTICOSTEROIDS (UNSPECIFIED) [Concomitant]
     Route: 065
  5. FLUCONAZOLE [Concomitant]
     Indication: ANTIFUNGAL PROPHYLAXIS
     Route: 042
     Dates: start: 20040216, end: 20040226
  6. FLUCONAZOLE [Concomitant]
     Indication: CANDIDIASIS
     Route: 042
     Dates: start: 20040313, end: 20040313
  7. FLUCONAZOLE [Concomitant]
     Route: 042
     Dates: start: 20040314, end: 20040316

REACTIONS (5)
  - CANDIDIASIS [None]
  - DEATH [None]
  - RESPIRATORY MONILIASIS [None]
  - URINARY TRACT INFECTION FUNGAL [None]
  - VAGINAL CANDIDIASIS [None]
